FAERS Safety Report 23513619 (Version 4)
Quarter: 2024Q3

REPORT INFORMATION
  Report Type: Spontaneous
  Country: US (occurrence: US)
  Receive Date: 20240212
  Receipt Date: 20240703
  Transmission Date: 20241017
  Serious: Yes (Other)
  Sender: PFIZER
  Company Number: US-PFIZER INC-PV202300189611

PATIENT
  Age: 75 Year
  Sex: Female
  Weight: 58.957 kg

DRUGS (25)
  1. INLYTA [Suspect]
     Active Substance: AXITINIB
     Dosage: 25 MG (3 TABLETS IN AM AND 2 TABLETS IN PM)
     Route: 048
  2. INLYTA [Suspect]
     Active Substance: AXITINIB
     Dosage: 5 MG (TAKE 3 TABLETS IN AM AND 2 TABLETS IN PM)
     Route: 048
  3. INLYTA [Suspect]
     Active Substance: AXITINIB
     Dosage: 1 MG
     Route: 048
  4. INLYTA [Suspect]
     Active Substance: AXITINIB
     Dosage: (1MG TABLET, 3 TABS QAM, 2 TABS QPM)
     Route: 048
  5. POTASSIUM CHLORIDE [Concomitant]
     Active Substance: POTASSIUM CHLORIDE
     Dosage: 2 (TWO) TABLETS QD,POTASSIUM CHLORIDE CRYS ER
     Route: 048
     Dates: start: 20231003
  6. HYDROCORTISONE [Concomitant]
     Active Substance: HYDROCORTISONE\HYDROCORTISONE ACETATE
     Dosage: 3 (THREE) TABLETS QAM AND ONE Q DINNER
     Route: 048
     Dates: start: 20230920
  7. SYNTHROID [Concomitant]
     Active Substance: LEVOTHYROXINE SODIUM
     Dosage: 1 (ONE) TABLET QAM MONDAY-SATURDAY NONE SUNDAY
     Route: 048
     Dates: start: 20230811
  8. CALCITRIOL [Concomitant]
     Active Substance: CALCITRIOL
     Indication: Hypothyroidism
     Dosage: 1 (ONE) CAPSULE PO QHS EVERY OTHER DAY
     Route: 048
     Dates: start: 20230807
  9. HUMALOG [Concomitant]
     Active Substance: INSULIN LISPRO
     Dosage: 1 (ONE) EACH INJECT UP TO 50 UNITS DAILY PER SLIDING SCALE, 15 EACH, 90 DAYS
     Route: 058
     Dates: start: 20230403
  10. METOPROLOL TARTRATE [Concomitant]
     Active Substance: METOPROLOL TARTRATE
     Dosage: (TWO) TABLET PO BID
     Route: 048
     Dates: start: 20220726
  11. LANTUS SOLOSTAR [Concomitant]
     Active Substance: INSULIN GLARGINE
     Indication: Diabetes mellitus
     Dosage: 1 (ONE) SOLUTION PEN-INJECTOR INJECTING 16 UNITS SQ QHS
     Route: 058
     Dates: start: 20220726
  12. LANTUS SOLOSTAR [Concomitant]
     Active Substance: INSULIN GLARGINE
     Indication: Iatrogenic injury
  13. LOSARTAN POTASSIUM [Concomitant]
     Active Substance: LOSARTAN POTASSIUM
     Dosage: 1 TAB PO DAILY
     Route: 048
  14. IMODIUM [Concomitant]
     Active Substance: LOPERAMIDE HYDROCHLORIDE
     Dosage: 1 TAB PO PRN
     Route: 048
  15. POLYETHYLENE GLYCOL\PROPYLENE GLYCOL [Concomitant]
     Active Substance: POLYETHYLENE GLYCOL\PROPYLENE GLYCOL
     Dosage: (0.4-0.3% SOLUTION, OPHTHALMIC AS NEEDED)
     Route: 047
  16. MAGNESIUM [Concomitant]
     Active Substance: MAGNESIUM
     Dosage: 1 TAB PO QD
     Route: 048
  17. ONDANSETRON [Concomitant]
     Active Substance: ONDANSETRON
     Dosage: 1 TAB PO PRN
     Route: 048
  18. KEYTRUDA [Concomitant]
     Active Substance: PEMBROLIZUMAB
     Dosage: 200 MG ONCE EVERY 3 WEEKS
     Route: 042
  19. OMEPRAZOLE [Concomitant]
     Active Substance: OMEPRAZOLE
     Dosage: 20 MG CAPSULE ER 1 TAB PO QD PRN
     Route: 048
  20. FERROUS GLUCONATE [Concomitant]
     Active Substance: FERROUS GLUCONATE
     Dosage: 1 TAB PO QHS
     Route: 048
  21. AMLODIPINE BESYLATE [Concomitant]
     Active Substance: AMLODIPINE BESYLATE
     Dosage: 1 TAB PO QD
     Route: 048
  22. CALCIUM\VITAMIN D [Concomitant]
     Active Substance: CALCIUM\VITAMIN D
     Dosage: 1000 MG EFFER, 2 TABS DAILY
     Route: 048
  23. ATORVASTATIN CALCIUM [Concomitant]
     Active Substance: ATORVASTATIN CALCIUM
     Dosage: 1 PO QD
     Route: 048
  24. ASPIRIN [Concomitant]
     Active Substance: ASPIRIN
     Dosage: 81 MG TABLET DR, 1 QD
     Route: 048
  25. GLUCOSAMINE CHONDROITIN COMPLEX [CHONDROITIN SULFATE;CITROFLAVONOID;GL [Concomitant]
     Dosage: (1 ORAL TWO TIMES DAILY)
     Route: 048

REACTIONS (4)
  - Blindness [Unknown]
  - Diarrhoea [Unknown]
  - Stomatitis [Unknown]
  - Off label use [Unknown]
